FAERS Safety Report 15210595 (Version 1)
Quarter: 2018Q3

REPORT INFORMATION
  Report Type: Spontaneous
  Country: US (occurrence: US)
  Receive Date: 20180629
  Receipt Date: 20180629
  Transmission Date: 20181010
  Serious: Yes (Hospitalization)
  Sender: FDA-Public Use
  Company Number: None

PATIENT
  Age: 46 Year
  Sex: Male
  Weight: 54.5 kg

DRUGS (1)
  1. VANCOMYCIN 10GM FRESENIUS KABI [Suspect]
     Active Substance: VANCOMYCIN
     Indication: OSTEOMYELITIS
     Route: 042
     Dates: start: 20180624

REACTIONS (5)
  - Vomiting [None]
  - Rash pruritic [None]
  - Headache [None]
  - Rash generalised [None]
  - Chest pain [None]

NARRATIVE: CASE EVENT DATE: 20180625
